FAERS Safety Report 7612174-X (Version None)
Quarter: 2011Q3

REPORT INFORMATION
  Report Type: 
  Country: None (occurrence: None)
  Receive Date: 20110715
  Receipt Date: 20110706
  Transmission Date: 20111222
  Serious: Yes (Disabling)
  Sender: FDA-Public Use
  Company Number: GB-ASTRAZENECA-2011SE40272

PATIENT
  Age: 76 Year
  Sex: Female
  Weight: 73.9 kg

DRUGS (8)
  1. BUDESONIDE [Suspect]
     Route: 055
     Dates: start: 20110623
  2. LEVOTHYROXINE [Concomitant]
     Dates: start: 20110621
  3. BECLOMETHASONE DIPROPIONATE [Concomitant]
     Dates: start: 20110623
  4. ALBUTEROL [Concomitant]
     Dates: start: 20110623
  5. ACETAMINOPHEN [Concomitant]
     Dates: start: 20110321, end: 20110528
  6. SYMBICORT [Suspect]
     Dosage: 200/6 MCG UNKNOWN
     Route: 055
     Dates: start: 20110623
  7. RAMIPRIL [Concomitant]
     Dates: start: 20110321
  8. QVAR 40 [Concomitant]
     Dates: start: 20110113

REACTIONS (9)
  - PANIC ATTACK [None]
  - DRY MOUTH [None]
  - DYSPNOEA [None]
  - CHANGE OF BOWEL HABIT [None]
  - LIP SWELLING [None]
  - DIZZINESS [None]
  - SWELLING FACE [None]
  - CHEST PAIN [None]
  - PULSE PRESSURE INCREASED [None]
